FAERS Safety Report 10250880 (Version 1)
Quarter: 2014Q2

REPORT INFORMATION
  Report Type: Spontaneous
  Country: US (occurrence: US)
  Receive Date: 20140620
  Receipt Date: 20140620
  Transmission Date: 20141212
  Serious: Yes (Death)
  Sender: FDA-Public Use
  Company Number: US-BAXTER-2014BAX031049

PATIENT
  Age: 24 Year
  Sex: Female

DRUGS (6)
  1. CLINOLIPID [Suspect]
     Indication: OVERDOSE
     Dosage: INTRAOSSEOUS
     Route: 065
  2. CLINOLIPID [Suspect]
     Route: 042
  3. VERAPAMIL [Suspect]
     Indication: INTENTIONAL OVERDOSE
     Dosage: 30 TABLETS
     Route: 048
  4. VERAPAMIL [Suspect]
     Route: 048
  5. NOREPINEPHRINE [Suspect]
     Indication: BLOOD PRESSURE DECREASED
     Route: 041
  6. LIDOCAINE [Suspect]
     Indication: PRODUCT USED FOR UNKNOWN INDICATION
     Dosage: INTRAOSSEOUS
     Route: 042

REACTIONS (2)
  - Injection site pain [Recovered/Resolved]
  - Death [Fatal]
